FAERS Safety Report 6212347-7 (Version None)
Quarter: 2009Q2

REPORT INFORMATION
  Report Type: 
  Country: None (occurrence: None)
  Receive Date: 20090529
  Receipt Date: 20090514
  Transmission Date: 20091009
  Serious: Yes (Death)
  Sender: FDA-Public Use
  Company Number: 2009001480

PATIENT
  Age: 71 Year
  Sex: Female

DRUGS (5)
  1. ERLOTINIB(ERLOTINIB) (TABLET) (ERLOTINIB) [Suspect]
     Indication: DRUG USE FOR UNKNOWN INDICATION
     Dosage: (150 MG,QD),ORAL
     Route: 048
     Dates: start: 20090227
  2. CAPECITABINE (CAPECITABINE) [Suspect]
     Dosage: (1500 MG),ORAL
     Route: 048
     Dates: start: 20090227
  3. CEFTIZOXIME(CEFTIZOXIME) [Concomitant]
  4. LEVOFLOXACIN [Concomitant]
  5. THYMIC HUMORAL FACTOR GAMMA 2 [Concomitant]

REACTIONS (2)
  - DYSPNOEA [None]
  - REFUSAL OF TREATMENT BY PATIENT [None]
